FAERS Safety Report 21157469 (Version 1)
Quarter: 2022Q3

REPORT INFORMATION
  Report Type: Spontaneous
  Country: US (occurrence: US)
  Receive Date: 20220801
  Receipt Date: 20220801
  Transmission Date: 20221027
  Serious: Yes (Hospitalization)
  Sender: FDA-Public Use
  Company Number: US-PFIZER INC-202201014895

PATIENT
  Age: 63 Year
  Sex: Female
  Weight: 109.77 kg

DRUGS (2)
  1. RAPAMUNE [Suspect]
     Active Substance: SIROLIMUS
     Indication: Renal transplant
     Dosage: 0.5 MG (0.5MG TABLET TAKEN ON EVEN DAYS OF THE WEEK)
     Dates: start: 200412
  2. RAPAMUNE [Suspect]
     Active Substance: SIROLIMUS
     Dosage: 1 MG (1MG TABLET TAKEN ON ODD DAYS OF THE WEEK)
     Dates: start: 200412

REACTIONS (3)
  - COVID-19 [Unknown]
  - Urinary tract infection [Unknown]
  - Pneumonia [Unknown]
